FAERS Safety Report 25840312 (Version 1)
Quarter: 2025Q3

REPORT INFORMATION
  Report Type: Spontaneous
  Country: US (occurrence: US)
  Receive Date: 20250924
  Receipt Date: 20250924
  Transmission Date: 20251021
  Serious: Yes (Other)
  Sender: RANBAXY
  Company Number: US-SUN PHARMACEUTICAL INDUSTRIES INC-2025R1-527595

PATIENT
  Weight: 1.19 kg

DRUGS (1)
  1. PREDNISONE [Suspect]
     Active Substance: PREDNISONE
     Indication: Drug-induced liver injury
     Dosage: 60 MILLIGRAM, DAILY
     Route: 064

REACTIONS (8)
  - Foetal exposure during pregnancy [Unknown]
  - Adrenal insufficiency neonatal [Unknown]
  - Premature baby [Unknown]
  - Foetal growth restriction [Unknown]
  - Oligohydramnios [Unknown]
  - Pericardial effusion [Unknown]
  - Low birth weight baby [Unknown]
  - Gestational alloimmune liver disease [Unknown]
